FAERS Safety Report 17291397 (Version 1)
Quarter: 2020Q1

REPORT INFORMATION
  Report Type: Report from Study
  Country: None (occurrence: US)
  Receive Date: 20200121
  Receipt Date: 20200121
  Transmission Date: 20200409
  Serious: Yes (Other)
  Sender: FDA-Public Use
  Company Number: US-ABBVIE-20K-163-3237524-00

PATIENT
  Sex: Female

DRUGS (1)
  1. CREON [Suspect]
     Active Substance: PANCRELIPASE AMYLASE\PANCRELIPASE LIPASE\PANCRELIPASE PROTEASE
     Indication: PRODUCT USED FOR UNKNOWN INDICATION
     Route: 048

REACTIONS (15)
  - Exostosis [Unknown]
  - Hip arthroplasty [Unknown]
  - Liver operation [Unknown]
  - Splenectomy [Unknown]
  - Gastrectomy [Unknown]
  - Foot deformity [Unknown]
  - Central venous catheter removal [Unknown]
  - Umbilical hernia [Unknown]
  - Abdominal hernia [Unknown]
  - Intervertebral disc operation [Unknown]
  - Pancreas islet cell transplant [Unknown]
  - Cholecystectomy [Unknown]
  - Pylorectomy [Unknown]
  - Knee arthroplasty [Unknown]
  - Pancreatectomy [Unknown]

NARRATIVE: CASE EVENT DATE: 2013
